FAERS Safety Report 11583716 (Version 1)
Quarter: 2015Q4

REPORT INFORMATION
  Report Type: Spontaneous
  Country: US (occurrence: US)
  Receive Date: 20151001
  Receipt Date: 20151001
  Transmission Date: 20160304
  Serious: Yes (Hospitalization)
  Sender: FDA-Public Use
  Company Number: US-ROCHE-659451

PATIENT
  Age: 56 Year
  Sex: Male

DRUGS (3)
  1. RIBASPHERE [Suspect]
     Active Substance: RIBAVIRIN
     Indication: HEPATITIS C
     Dosage: DIVIDED DOSES FOR 22 WEEKS
     Route: 048
     Dates: start: 20090324, end: 20090910
  2. PEGASYS [Suspect]
     Active Substance: PEGINTERFERON ALFA-2A
     Indication: HEPATITIS C
     Dosage: FORM: PFS
     Route: 058
     Dates: start: 20090324, end: 20090924
  3. RIBASPHERE [Suspect]
     Active Substance: RIBAVIRIN
     Dosage: FOR 2 WEEKS
     Route: 048
     Dates: start: 20090911, end: 20090924

REACTIONS (4)
  - Photosensitivity reaction [Unknown]
  - Pain [Unknown]
  - Polyarthritis [Unknown]
  - Haemoglobin decreased [Unknown]

NARRATIVE: CASE EVENT DATE: 200909
